FAERS Safety Report 4368440-7 (Version None)
Quarter: 2004Q2

REPORT INFORMATION
  Report Type: 
  Country: None (occurrence: None)
  Receive Date: 20040602
  Receipt Date: 20040129
  Transmission Date: 20050107
  Serious: No
  Sender: FDA-Public Use
  Company Number: US-GLAXOSMITHKLINE-A0495746A

PATIENT
  Age: 43 Year
  Sex: Female

DRUGS (2)
  1. AUGMENTIN [Suspect]
     Indication: SINUSITIS
     Dosage: 875MG TWICE PER DAY
     Route: 048
     Dates: start: 20040126, end: 20040127
  2. AUGMENTIN [Suspect]
     Dosage: 2TAB TWICE PER DAY
     Route: 048
     Dates: start: 20040127

REACTIONS (3)
  - FUNGAL INFECTION [None]
  - HEADACHE [None]
  - INSOMNIA [None]
